FAERS Safety Report 9892659 (Version 1)
Quarter: 2014Q1

REPORT INFORMATION
  Report Type: Spontaneous
  Country: US (occurrence: US)
  Receive Date: 20140212
  Receipt Date: 20140212
  Transmission Date: 20141002
  Serious: No
  Sender: FDA-Public Use
  Company Number: US-B.I. PHARMACEUTICALS,INC./RIDGEFIELD-2014-BI-05969BP

PATIENT
  Age: 60 Year
  Sex: Female
  Weight: 61 kg

DRUGS (6)
  1. GILOTRIF [Suspect]
     Indication: LUNG NEOPLASM MALIGNANT
     Dosage: 40 MG
     Route: 048
  2. GILOTRIF [Suspect]
     Indication: METASTASES TO CENTRAL NERVOUS SYSTEM
  3. WARFARIN [Concomitant]
     Indication: THROMBOSIS
     Dosage: 5 MG
     Route: 048
  4. OXYCODONE [Concomitant]
     Indication: PAIN
     Dosage: STRENGTH: 5-325 MG
     Route: 048
  5. OMEPRAZOLE [Concomitant]
     Indication: GASTROOESOPHAGEAL REFLUX DISEASE
     Dosage: 20 MG
     Route: 048
  6. DEXAMETHASONE [Concomitant]
     Dosage: 6 MG
     Route: 048

REACTIONS (3)
  - Thrombosis [Recovered/Resolved]
  - Herpes zoster [Not Recovered/Not Resolved]
  - Diarrhoea [Recovered/Resolved]
